FAERS Safety Report 5654811-5 (Version None)
Quarter: 2008Q1

REPORT INFORMATION
  Report Type: 
  Country: None (occurrence: None)
  Receive Date: 20080307
  Receipt Date: 20070724
  Transmission Date: 20080703
  Serious: No
  Sender: FDA-Public Use
  Company Number: A0666063A

PATIENT
  Age: 74 Year
  Sex: Male

DRUGS (2)
  1. REQUIP [Suspect]
     Indication: RESTLESS LEGS SYNDROME
     Route: 048
     Dates: end: 20070624
  2. UNSPECIFIED MEDICATION [Concomitant]

REACTIONS (1)
  - IMPULSE-CONTROL DISORDER [None]
